FAERS Safety Report 19732646 (Version 2)
Quarter: 2021Q4

REPORT INFORMATION
  Report Type: Spontaneous
  Country: JP (occurrence: JP)
  Receive Date: 20210823
  Receipt Date: 20211014
  Transmission Date: 20220303
  Serious: Yes (Other)
  Sender: FDA-Public Use
  Company Number: JP-UCBJ-CD202107377UCBPHAPROD

PATIENT
  Age: 61 Year
  Sex: Female
  Weight: 73 kg

DRUGS (8)
  1. VIMPAT [Suspect]
     Active Substance: LACOSAMIDE
     Indication: Epilepsy
     Dosage: 50 MILLIGRAM, 2X/DAY (BID)
     Route: 048
     Dates: start: 20170913, end: 20171002
  2. VIMPAT [Suspect]
     Active Substance: LACOSAMIDE
     Dosage: 300MG DAILY
     Route: 048
     Dates: start: 20171003, end: 20190623
  3. VIMPAT [Suspect]
     Active Substance: LACOSAMIDE
     Dosage: 200MG DAILY
     Route: 048
     Dates: start: 20190624, end: 20210620
  4. VIMPAT [Suspect]
     Active Substance: LACOSAMIDE
     Dosage: 150MG DAILY
     Route: 048
     Dates: start: 20210621
  5. LEVETIRACETAM [Concomitant]
     Active Substance: LEVETIRACETAM
     Indication: Epilepsy
     Dosage: UNK
     Route: 048
  6. MYSTAN [Concomitant]
     Active Substance: CLOBAZAM
     Indication: Epilepsy
     Dosage: 2.5 MILLIGRAM, 2X/DAY (BID)
     Route: 048
     Dates: start: 20030214
  7. MYSTAN [Concomitant]
     Active Substance: CLOBAZAM
     Dosage: 10MG DAILY
     Route: 048
     Dates: start: 20171124
  8. ALFACALCIDOL [Concomitant]
     Active Substance: ALFACALCIDOL
     Indication: Prophylaxis
     Dosage: 1 MG DAILY
     Route: 048
     Dates: start: 20170725, end: 20200928

REACTIONS (2)
  - Dystonia [Recovering/Resolving]
  - Renal impairment [Unknown]

NARRATIVE: CASE EVENT DATE: 20190101
